FAERS Safety Report 13664579 (Version 2)
Quarter: 2017Q3

REPORT INFORMATION
  Report Type: Spontaneous
  Country: US (occurrence: US)
  Receive Date: 20170619
  Receipt Date: 20170802
  Transmission Date: 20171127
  Serious: No
  Sender: FDA-Public Use
  Company Number: US-GLAXOSMITHKLINE-US2017GSK093477

PATIENT
  Age: 57 Year
  Sex: Male

DRUGS (5)
  1. METOPROLOL. [Suspect]
     Active Substance: METOPROLOL
     Indication: PRODUCT USED FOR UNKNOWN INDICATION
     Dosage: UNK, U
  2. FLOLAN [Suspect]
     Active Substance: EPOPROSTENOL SODIUM
     Indication: PULMONARY ARTERIAL HYPERTENSION
     Dosage: 80.7 NG/KG/MIN, CO
     Route: 042
     Dates: start: 20060411
  3. MORPHINE ER [Suspect]
     Active Substance: MORPHINE
     Indication: PRODUCT USED FOR UNKNOWN INDICATION
     Dosage: 60 MG, BID
  4. FLOLAN DILUENT PH 12 SOLUTION FOR INJECTION [Suspect]
     Active Substance: GLYCINE\MANNITOL\SODIUM CHLORIDE
     Indication: PULMONARY ARTERIAL HYPERTENSION
     Dosage: UNK, U
  5. FUROSEMIDE. [Concomitant]
     Active Substance: FUROSEMIDE
     Indication: PRODUCT USED FOR UNKNOWN INDICATION

REACTIONS (13)
  - Muscle tightness [Unknown]
  - Dyspnoea [Unknown]
  - Oxygen saturation decreased [Unknown]
  - Abdominal distension [Unknown]
  - Exercise tolerance decreased [Unknown]
  - Weight decreased [Unknown]
  - Localised oedema [Not Recovered/Not Resolved]
  - Abdominal hernia [Unknown]
  - Oedema peripheral [Not Recovered/Not Resolved]
  - Fat tissue increased [Unknown]
  - Oedema [Unknown]
  - Dizziness postural [Unknown]
  - Decreased appetite [Unknown]

NARRATIVE: CASE EVENT DATE: 201701
